FAERS Safety Report 7439920-2 (Version None)
Quarter: 2011Q2

REPORT INFORMATION
  Report Type: 
  Country: None (occurrence: None)
  Receive Date: 20110427
  Receipt Date: 20110413
  Transmission Date: 20111010
  Serious: Yes (Hospitalization)
  Sender: FDA-Public Use
  Company Number: IL-WATSON-2011-05490

PATIENT
  Age: 24 Year
  Sex: Female

DRUGS (3)
  1. FENTANYL CITRATE [Suspect]
     Dosage: 0.1 ML, SINGLE
     Route: 008
  2. PREDNISONE (WATSON LABORATORIES) [Suspect]
     Indication: PARALYSIS
     Dosage: 50 MG, DAILY
     Route: 048
  3. BUPIVACAINE [Suspect]
     Indication: ANALGESIC THERAPY
     Dosage: 8 ML 0.25%

REACTIONS (2)
  - BRACHIAL PLEXOPATHY [None]
  - PARALYSIS [None]
